FAERS Safety Report 16927665 (Version 2)
Quarter: 2019Q4

REPORT INFORMATION
  Report Type: Report from Study
  Country: None (occurrence: ES)
  Receive Date: 20191016
  Receipt Date: 20191018
  Transmission Date: 20200122
  Serious: Yes (Death, Hospitalization)
  Sender: FDA-Public Use
  Company Number: ES-ABBVIE-19K-144-2964212-00

PATIENT
  Age: 83 Year
  Sex: Female

DRUGS (1)
  1. DUODOPA [Suspect]
     Active Substance: CARBIDOPA\LEVODOPA
     Indication: PARKINSON^S DISEASE
     Route: 050
     Dates: start: 20130117, end: 20190912

REACTIONS (5)
  - Pneumonia aspiration [Unknown]
  - Death [Fatal]
  - Urinary tract infection [Unknown]
  - Intentional device use issue [Unknown]
  - Faecaloma [Unknown]

NARRATIVE: CASE EVENT DATE: 201910
